FAERS Safety Report 4951113-7 (Version None)
Quarter: 2006Q1

REPORT INFORMATION
  Report Type: 
  Country: None (occurrence: None)
  Receive Date: 20060322
  Receipt Date: 20050421
  Transmission Date: 20060701
  Serious: Yes (Hospitalization)
  Sender: FDA-Public Use
  Company Number: US-MERCK-0504USA04294

PATIENT
  Age: 59 Year
  Sex: Male
  Weight: 82 kg

DRUGS (10)
  1. VIOXX [Suspect]
     Indication: NECK PAIN
     Route: 048
     Dates: start: 20000101, end: 20030101
  2. VIOXX [Suspect]
     Route: 048
     Dates: start: 20021202, end: 20021207
  3. VIOXX [Suspect]
     Route: 048
     Dates: start: 20021208
  4. VIOXX [Suspect]
     Indication: SHOULDER PAIN
     Route: 048
     Dates: start: 20000101, end: 20030101
  5. VIOXX [Suspect]
     Route: 048
     Dates: start: 20021202, end: 20021207
  6. VIOXX [Suspect]
     Route: 048
     Dates: start: 20021208
  7. PROZAC [Concomitant]
     Indication: ANXIETY
     Route: 065
  8. OXYCODONE [Concomitant]
     Route: 065
     Dates: start: 20000101
  9. HYDROCODONE BITARTRATE [Concomitant]
     Route: 065
     Dates: start: 20000101
  10. NAPROXEN [Concomitant]
     Route: 065
     Dates: start: 20020101

REACTIONS (9)
  - ACUTE MYOCARDIAL INFARCTION [None]
  - AORTIC VALVE INCOMPETENCE [None]
  - BLOOD CHOLESTEROL INCREASED [None]
  - CARDIAC ARREST [None]
  - CORONARY ARTERY STENOSIS [None]
  - ROTATOR CUFF SYNDROME [None]
  - SPINAL OSTEOARTHRITIS [None]
  - TENDONITIS [None]
  - VENTRICULAR FIBRILLATION [None]
